FAERS Safety Report 10564028 (Version 13)
Quarter: 2022Q1

REPORT INFORMATION
  Report Type: Report from Study
  Country: IT (occurrence: IT)
  Receive Date: 20141104
  Receipt Date: 20220120
  Transmission Date: 20220423
  Serious: Yes (Life-Threatening, Hospitalization, Disabling)
  Sender: FDA-Public Use
  Company Number: IT-PFIZER INC-2014301589

PATIENT
  Age: 56 Year
  Sex: Female
  Weight: 67 kg

DRUGS (7)
  1. TOFACITINIB CITRATE [Suspect]
     Active Substance: TOFACITINIB CITRATE
     Indication: Colitis ulcerative
     Dosage: 10 MG, 2X/DAY
     Route: 048
     Dates: start: 20140806, end: 20141029
  2. MESALAMINE [Concomitant]
     Active Substance: MESALAMINE
     Indication: Colitis ulcerative
     Dosage: 800 MG, 4X/DAY
     Route: 048
     Dates: start: 20000201, end: 20141029
  3. ATORVASTATIN CALCIUM [Concomitant]
     Active Substance: ATORVASTATIN CALCIUM
     Indication: Hypercholesterolaemia
     Dosage: 10 MG, 1X/DAY
     Route: 048
     Dates: start: 20081201, end: 20141029
  4. IRBESARTAN [Concomitant]
     Active Substance: IRBESARTAN
     Indication: Hypertension
     Dosage: 150 MG, 1X/DAY
     Route: 048
     Dates: start: 20081201
  5. INSULIN NOS [Concomitant]
     Active Substance: INSULIN NOS
     Indication: Diabetes mellitus
     Dosage: 16 IU, 24 IU, 16 IU, 3 TIMES DAILY
     Route: 058
     Dates: start: 20081201
  6. LEUCOVORIN [Concomitant]
     Active Substance: LEUCOVORIN
     Indication: Nutritional supplementation
     Dosage: 5 MG, 3X/DAY
     Route: 048
     Dates: start: 20081201, end: 20141029
  7. OMEPRAZOLE [Concomitant]
     Active Substance: OMEPRAZOLE
     Indication: Prophylaxis
     Dosage: 20 MG, 1X/DAY
     Route: 048
     Dates: start: 20140201, end: 20141029

REACTIONS (1)
  - Haemorrhagic stroke [Recovered/Resolved with Sequelae]

NARRATIVE: CASE EVENT DATE: 20141029
